FAERS Safety Report 14654990 (Version 1)
Quarter: 2018Q1

REPORT INFORMATION
  Report Type: Spontaneous
  Country: IT (occurrence: IT)
  Receive Date: 20180319
  Receipt Date: 20180319
  Transmission Date: 20180509
  Serious: Yes (Hospitalization)
  Sender: FDA-Public Use
  Company Number: IT-MYLANLABS-2018M1016230

PATIENT
  Age: 90 Year
  Sex: Female

DRUGS (7)
  1. LANOXIN [Suspect]
     Active Substance: DIGOXIN
     Indication: CARDIAC FAILURE
     Dosage: 0.062 MG, ONCE DAILY (QD)
     Route: 048
  2. EUTIROX [Concomitant]
     Active Substance: LEVOTHYROXINE SODIUM
     Indication: PRODUCT USED FOR UNKNOWN INDICATION
     Dosage: 25 ?G, STRENGTH
  3. LASIX [Concomitant]
     Active Substance: FUROSEMIDE
     Indication: PRODUCT USED FOR UNKNOWN INDICATION
     Dosage: STRENGTH 25 MG
  4. LUVION                             /00252501/ [Concomitant]
     Active Substance: CANRENOIC ACID
     Indication: PRODUCT USED FOR UNKNOWN INDICATION
     Dosage: 50 MG STRENGTH
  5. COUMADIN [Suspect]
     Active Substance: WARFARIN SODIUM
     Indication: THROMBOSIS PROPHYLAXIS
     Dosage: 5 MG, ONCE DAILY (QD)
     Route: 048
  6. ATENOLOL. [Suspect]
     Active Substance: ATENOLOL
     Indication: ARRHYTHMIA
     Dosage: 1 DF, ONCE DAILY (QD)
     Route: 048
  7. ZYLORIC [Concomitant]
     Active Substance: ALLOPURINOL
     Indication: PRODUCT USED FOR UNKNOWN INDICATION
     Dosage: 100 MG, STRENGTH

REACTIONS (5)
  - International normalised ratio abnormal [Unknown]
  - Atrial fibrillation [Unknown]
  - Bradycardia [Unknown]
  - Syncope [Unknown]
  - Overdose [Unknown]

NARRATIVE: CASE EVENT DATE: 20170321
